FAERS Safety Report 5808127-4 (Version None)
Quarter: 2008Q3

REPORT INFORMATION
  Report Type: 
  Country: None (occurrence: None)
  Receive Date: 20080711
  Receipt Date: 20080701
  Transmission Date: 20090109
  Serious: Yes (Other)
  Sender: FDA-Public Use
  Company Number: GR-PFIZER INC-2008056252

PATIENT
  Sex: Female

DRUGS (2)
  1. CLINDAMYCIN HCL [Suspect]
  2. ALL OTHER THERAPEUTIC PRODUCTS [Concomitant]
     Dates: start: 20080630, end: 20080630

REACTIONS (3)
  - CHEST PAIN [None]
  - DIARRHOEA [None]
  - MALAISE [None]
